FAERS Safety Report 7542747-4 (Version None)
Quarter: 2011Q2

REPORT INFORMATION
  Report Type: 
  Country: None (occurrence: None)
  Receive Date: 20110613
  Receipt Date: 20110602
  Transmission Date: 20111010
  Serious: Yes (Hospitalization, Other)
  Sender: FDA-Public Use
  Company Number: A0930123A

PATIENT
  Sex: Female
  Weight: 59.1 kg

DRUGS (29)
  1. OXYCODONE [Concomitant]
     Dosage: 30MG THREE TIMES PER DAY
  2. ALENDRONATE SODIUM [Concomitant]
     Indication: OSTEOPOROSIS
     Dosage: 70MG WEEKLY
  3. SENOKOT [Concomitant]
  4. ADVAIR DISKUS 100/50 [Suspect]
     Indication: CHRONIC OBSTRUCTIVE PULMONARY DISEASE
     Dosage: 1PUFF TWICE PER DAY
     Route: 055
     Dates: start: 20101101
  5. LYRICA [Concomitant]
     Dosage: 150MG TWICE PER DAY
  6. METOCLOPRAMIDE [Concomitant]
     Dosage: 10MG TWICE PER DAY
  7. VITAMIN B6 [Concomitant]
     Dosage: 250MG PER DAY
  8. FLOVENT [Suspect]
     Dosage: 2PUFF TWICE PER DAY
     Route: 065
     Dates: end: 20101101
  9. ALBUTEROL [Concomitant]
     Dosage: 4PUFF SEE DOSAGE TEXT
     Route: 055
  10. GRAVOL TAB [Concomitant]
     Dosage: 5MG FOUR TIMES PER DAY
  11. BISACODYL [Concomitant]
  12. ZINC [Concomitant]
     Dosage: 50MG PER DAY
  13. FOLIC ACID [Concomitant]
     Dosage: 1MG PER DAY
  14. OXYCODONE [Concomitant]
     Dosage: 10MG AS REQUIRED
  15. PANTOPRAZOLE SODIUM [Concomitant]
     Dosage: 40MG TWICE PER DAY
  16. DICLOFENAC SODIUM [Concomitant]
     Indication: BONE PAIN
  17. VITAMIN B COMPLEX CAP [Concomitant]
  18. VITAMIN B1 TAB [Concomitant]
     Dosage: 100MG PER DAY
  19. VITAMIN B-12 [Concomitant]
     Dosage: 1200MG PER DAY
  20. GLUCOSAMINE [Concomitant]
     Dosage: 500MG PER DAY
  21. HERCEPTIN [Concomitant]
     Indication: BREAST CANCER
  22. LOVAZA [Concomitant]
     Dosage: 1000MG TWICE PER DAY
  23. CALCIUM CARBONATE [Concomitant]
     Dosage: 500MG THREE TIMES PER DAY
  24. ARIMIDEX [Concomitant]
     Indication: LIFE EXPECTANCY SHORTENED
     Dosage: 1MG PER DAY
  25. VITAMIN D [Concomitant]
     Dosage: 100IU PER DAY
  26. MAGNESIUM SULFATE [Concomitant]
     Dosage: 250MG PER DAY
  27. DIAZEPAM [Concomitant]
     Dosage: 10MG FOUR TIMES PER DAY
  28. CALCIUM CARBONATE [Concomitant]
     Dosage: 400MG PER DAY
  29. ASPIRIN [Concomitant]
     Dosage: 85MG PER DAY

REACTIONS (14)
  - PNEUMONIA [None]
  - SKIN EXFOLIATION [None]
  - WALKING AID USER [None]
  - RESPIRATORY TRACT INFECTION [None]
  - POSTOPERATIVE WOUND COMPLICATION [None]
  - DRUG WITHDRAWAL SYNDROME [None]
  - BALANCE DISORDER [None]
  - MASS [None]
  - ASTHENIA [None]
  - POOR QUALITY SLEEP [None]
  - CARDIAC FAILURE CONGESTIVE [None]
  - ORAL CANDIDIASIS [None]
  - LOWER RESPIRATORY TRACT INFECTION [None]
  - DYSPNOEA [None]
